FAERS Safety Report 15282016 (Version 1)
Quarter: 2018Q4

REPORT INFORMATION
  Report Type: Spontaneous
  Country: JP (occurrence: JP)
  Receive Date: 20180815
  Receipt Date: 20180815
  Transmission Date: 20190204
  Serious: Yes (Other)
  Sender: FDA-Public Use
  Company Number: JP-SPECTRUM PHARMACEUTICALS, INC.-18-F-JP-00201

PATIENT
  Age: 78 Year
  Sex: Female

DRUGS (3)
  1. FORODESINE [Suspect]
     Active Substance: FORODESINE
     Indication: ANGIOIMMUNOBLASTIC T-CELL LYMPHOMA STAGE III
     Dosage: 400 MG, QD
     Route: 048
     Dates: start: 20180403, end: 20180416
  2. FOLOTYN [Suspect]
     Active Substance: PRALATREXATE
     Dosage: 30 MG/M2, UNK
     Route: 042
     Dates: end: 20180326
  3. FOLOTYN [Suspect]
     Active Substance: PRALATREXATE
     Indication: ANGIOIMMUNOBLASTIC T-CELL LYMPHOMA STAGE III
     Dosage: 20 MG/M2, UNK
     Route: 042
     Dates: start: 20171020

REACTIONS (4)
  - Laryngeal oedema [Unknown]
  - Malignant neoplasm progression [Unknown]
  - Lymphocyte percentage decreased [Unknown]
  - Stomatitis [Unknown]

NARRATIVE: CASE EVENT DATE: 201804
